FAERS Safety Report 24157686 (Version 1)
Quarter: 2024Q3

REPORT INFORMATION
  Report Type: Spontaneous
  Country: US (occurrence: US)
  Receive Date: 20240731
  Receipt Date: 20240731
  Transmission Date: 20241016
  Serious: Yes (Other)
  Sender: AMGEN
  Company Number: US-AMGEN-USASP2024146445

PATIENT
  Age: 73 Year

DRUGS (1)
  1. ENBREL [Suspect]
     Active Substance: BENZYL ALCOHOL\ETANERCEPT
     Indication: Rheumatoid arthritis
     Dosage: 50 MILLIGRAM, QWK
     Route: 058
     Dates: start: 20240707

REACTIONS (6)
  - Knee arthroplasty [Unknown]
  - Rheumatoid arthritis [Unknown]
  - Device difficult to use [Unknown]
  - Drug dose omission by device [Unknown]
  - Accidental exposure to product [Unknown]
  - Wrong technique in product usage process [Unknown]

NARRATIVE: CASE EVENT DATE: 20240701
